FAERS Safety Report 13362852 (Version 1)
Quarter: 2017Q1

REPORT INFORMATION
  Report Type: Spontaneous
  Country: US (occurrence: US)
  Receive Date: 20170322
  Receipt Date: 20170322
  Transmission Date: 20170429
  Serious: Yes (Disabling)
  Sender: FDA-Public Use
  Company Number: None

PATIENT
  Age: 55 Year
  Sex: Female
  Weight: 58.5 kg

DRUGS (1)
  1. METHYLPREDNISOLONE INJECTION [Suspect]
     Active Substance: METHYLPREDNISOLONE SODIUM SUCCINATE
     Indication: PAIN MANAGEMENT
     Dates: start: 20170223

REACTIONS (3)
  - Contusion [None]
  - Haemorrhage [None]
  - Petechiae [None]

NARRATIVE: CASE EVENT DATE: 20170308
